FAERS Safety Report 15606326 (Version 2)
Quarter: 2020Q2

REPORT INFORMATION
  Report Type: Spontaneous
  Country: US (occurrence: US)
  Receive Date: 20181112
  Receipt Date: 20200529
  Transmission Date: 20200713
  Serious: Yes (Other)
  Sender: FDA-Public Use
  Company Number: US-DRREDDYS-USA/USA/18/0105371

PATIENT
  Age: 71 Year
  Sex: Female

DRUGS (1)
  1. DOXORUBICIN HYDROCHLORIDE LIPOSOME INJECTION 20 MG/10 ML (2 MG/ML) AND [Suspect]
     Active Substance: DOXORUBICIN HYDROCHLORIDE
     Indication: HEPATOCELLULAR CARCINOMA
     Dosage: RANGE: 50 TO 150

REACTIONS (1)
  - Liver abscess [Unknown]
